FAERS Safety Report 9383063 (Version 1)
Quarter: 2013Q3

REPORT INFORMATION
  Report Type: Spontaneous
  Country: US (occurrence: US)
  Receive Date: 20130704
  Receipt Date: 20130704
  Transmission Date: 20140515
  Serious: No
  Sender: FDA-Public Use
  Company Number: US-009507513-1306USA014035

PATIENT
  Age: 45 Year
  Sex: Female

DRUGS (4)
  1. SAPHRIS [Suspect]
     Indication: BIPOLAR I DISORDER
     Dosage: 5 MG, HS
     Route: 060
     Dates: start: 20130604, end: 20130614
  2. SAPHRIS [Suspect]
     Dosage: 10 MG, HS
     Route: 060
     Dates: start: 20130614, end: 20130621
  3. WELLBUTRIN [Concomitant]
  4. KLONOPIN [Concomitant]

REACTIONS (1)
  - Rash generalised [Unknown]
